FAERS Safety Report 9276184 (Version 1)
Quarter: 2013Q2

REPORT INFORMATION
  Report Type: Spontaneous
  Country: IT (occurrence: IT)
  Receive Date: 20130507
  Receipt Date: 20130507
  Transmission Date: 20140414
  Serious: Yes (Other)
  Sender: FDA-Public Use
  Company Number: IT-TEVA-402454ISR

PATIENT
  Age: 66 Year
  Sex: Male

DRUGS (5)
  1. OXALIPLATINO TEVA 5 MG/ML CONCENTRADO PARA SOLUCI?N PARA PERFUSION [Suspect]
     Indication: ADENOCARCINOMA OF COLON
     Route: 042
     Dates: start: 20130325, end: 20130408
  2. ZOFRAN [Concomitant]
     Indication: PROPHYLAXIS
     Route: 042
  3. RIDUTOX [Concomitant]
     Dosage: 1800 MILLIGRAM DAILY;
     Route: 042
  4. CALCIO LEVOFOLINATO TEVA [Concomitant]
     Indication: ADENOCARCINOMA OF COLON
     Dosage: 175 MILLIGRAM DAILY;
     Route: 042
  5. FLUOROURACILE TEVA [Concomitant]
     Indication: ADENOCARCINOMA OF COLON
     Dosage: 720 MILLIGRAM DAILY;
     Route: 042

REACTIONS (3)
  - Hypertensive crisis [Recovering/Resolving]
  - Anxiety [Recovering/Resolving]
  - Erythema [Recovering/Resolving]
